FAERS Safety Report 6596151-6 (Version None)
Quarter: 2010Q1

REPORT INFORMATION
  Report Type: 
  Country: None (occurrence: None)
  Receive Date: 20100223
  Receipt Date: 20100211
  Transmission Date: 20100710
  Serious: Yes (Hospitalization)
  Sender: FDA-Public Use
  Company Number: FR-WYE-H13598610

PATIENT
  Age: 89 Year
  Sex: Female

DRUGS (8)
  1. CORDARONE [Suspect]
     Route: 048
  2. PREVISCAN [Interacting]
     Route: 048
     Dates: end: 20090527
  3. DUPHALAC [Concomitant]
  4. TRIATEC [Concomitant]
     Dosage: UNSPECIFIED
  5. DIFFU K [Concomitant]
     Dosage: UNSPECIFIED
  6. STILNOX [Concomitant]
     Dosage: UNSPECIFIED
  7. KARDEGIC [Interacting]
     Route: 048
     Dates: end: 20090501
  8. ECONAZOLE NITRATE [Interacting]

REACTIONS (2)
  - DRUG INTERACTION [None]
  - RECTAL HAEMORRHAGE [None]
